FAERS Safety Report 24384366 (Version 1)
Quarter: 2024Q4

REPORT INFORMATION
  Report Type: Spontaneous
  Country: DE (occurrence: DE)
  Receive Date: 20241001
  Receipt Date: 20241001
  Transmission Date: 20250115
  Serious: Yes (Other)
  Sender: NOVARTIS
  Company Number: DE-002147023-NVSC2024DE192501

PATIENT
  Age: 92 Year
  Sex: Male

DRUGS (1)
  1. ILARIS [Suspect]
     Active Substance: CANAKINUMAB
     Indication: Product used for unknown indication
     Dosage: 150 MILLIGRAM PER MILLILITRE
     Route: 065
     Dates: start: 2022

REACTIONS (4)
  - Vasculitis [Unknown]
  - Inflammation [Unknown]
  - Tendonitis [Unknown]
  - Capillary disorder [Unknown]
